FAERS Safety Report 8585267-0 (Version None)
Quarter: 2012Q3

REPORT INFORMATION
  Report Type: 
  Country: None (occurrence: None)
  Receive Date: 20120810
  Receipt Date: 20120808
  Transmission Date: 20120928
  Serious: Yes (Hospitalization, Other)
  Sender: FDA-Public Use
  Company Number: PHFR2011GB007367

PATIENT
  Sex: Male
  Weight: 103.6 kg

DRUGS (5)
  1. CLOZARIL [Suspect]
     Indication: SCHIZOPHRENIA
     Dosage: 175 MG, (75MG AM AND 100MG PM)
     Route: 048
     Dates: start: 20111208
  2. CLOZARIL [Suspect]
     Dosage: 300 MG, QD
     Route: 048
     Dates: start: 20120101
  3. CLOZARIL [Suspect]
     Dosage: 425 MG, UNK
  4. OMEPRAZOLE [Concomitant]
     Indication: GASTRITIS
     Dosage: 20 MG, QD
     Route: 048
  5. HYOSCINE HYDROBROMIDE [Concomitant]
     Indication: SALIVARY HYPERSECRETION
     Dosage: 600 MG, QD
     Route: 048
     Dates: start: 20120101

REACTIONS (5)
  - HEART RATE IRREGULAR [None]
  - DROP ATTACKS [None]
  - MYOCLONUS [None]
  - TACHYCARDIA [None]
  - ANTIPSYCHOTIC DRUG LEVEL BELOW THERAPEUTIC [None]
